FAERS Safety Report 24387812 (Version 3)
Quarter: 2024Q4

REPORT INFORMATION
  Report Type: Report from Study
  Country: US (occurrence: US)
  Receive Date: 20241002
  Receipt Date: 20241015
  Transmission Date: 20250115
  Serious: Yes (Hospitalization)
  Sender: MERCK
  Company Number: US-009507513-2407USA003974

PATIENT
  Age: 72 Year
  Sex: Female
  Weight: 44.444 kg

DRUGS (8)
  1. SOTATERCEPT [Suspect]
     Active Substance: SOTATERCEPT
     Indication: Pulmonary arterial hypertension
     Dosage: STRENGH: 45 MG, INJECT 0.3ML UNDER THE SKIN FOR 1 DOSE, THEN INCREASED TO 0.6ML FOR TARGET DOSE
     Route: 058
     Dates: start: 202407
  2. WINREVAIR [Suspect]
     Active Substance: SOTATERCEPT-CSRK
     Indication: Pulmonary arterial hypertension
     Dosage: STRENGH: 45 MG, INJECT 0.3ML UNDER THE SKIN FOR 1 DOSE, THEN INCREASED TO 0.6ML FOR TARGET DOSE
     Route: 058
     Dates: start: 202407
  3. WINREVAIR [Suspect]
     Active Substance: SOTATERCEPT-CSRK
     Indication: Pulmonary arterial hypertension
     Dosage: 0.6 MILLILITER, Q3W, STRENGH: 45 MG
     Route: 058
     Dates: start: 202407
  4. WINREVAIR [Suspect]
     Active Substance: SOTATERCEPT-CSRK
     Indication: Pulmonary arterial hypertension
     Dosage: 0.6 MILLILITER, Q3W. STRENGH: 45 MG
     Route: 058
     Dates: start: 202407
  5. TYVASO DPI [Suspect]
     Active Substance: TREPROSTINIL
     Indication: Pulmonary arterial hypertension
     Dosage: 64 MICROGRAM, QID
     Dates: start: 202301
  6. SILDENAFIL CITRATE [Concomitant]
     Active Substance: SILDENAFIL CITRATE
     Dosage: 64 MICROGRAM, QID
  7. TERIPARATIDE [Concomitant]
     Active Substance: TERIPARATIDE
     Dosage: UNK
  8. OPSUMIT [Concomitant]
     Active Substance: MACITENTAN
     Dosage: UNK

REACTIONS (5)
  - Urinary tract infection [Unknown]
  - Dyspnoea exertional [Unknown]
  - Dizziness postural [Recovered/Resolved]
  - Dental implantation [Not Recovered/Not Resolved]
  - Post procedural haemorrhage [Not Recovered/Not Resolved]

NARRATIVE: CASE EVENT DATE: 20240701
